FAERS Safety Report 5490052-2 (Version None)
Quarter: 2007Q4

REPORT INFORMATION
  Report Type: 
  Country: None (occurrence: None)
  Receive Date: 20071018
  Receipt Date: 20071008
  Transmission Date: 20080405
  Serious: Yes (Life-Threatening, Hospitalization, Other)
  Sender: FDA-Public Use
  Company Number: FI-ELI_LILLY_AND_COMPANY-FI200710001755

PATIENT
  Age: 27 Year
  Sex: Female

DRUGS (3)
  1. CYMBALTA [Suspect]
     Indication: DEPRESSION
     Dosage: 1680 MG (60 MG X 28 CAPSULES AT ONCE)
     Route: 048
     Dates: start: 20071005, end: 20071005
  2. OPAMOX [Concomitant]
     Indication: ANXIETY
     Dosage: 1-2 15 MG TABLETS, AS NEEDED
     Route: 065
  3. TENOX [Concomitant]
     Indication: INSOMNIA
     Dosage: 20 MG, DAILY (1/D)
     Route: 065

REACTIONS (3)
  - INTENTIONAL OVERDOSE [None]
  - LOSS OF CONSCIOUSNESS [None]
  - SUICIDE ATTEMPT [None]
